FAERS Safety Report 10032165 (Version 3)
Quarter: 2014Q2

REPORT INFORMATION
  Report Type: Spontaneous
  Country: US (occurrence: US)
  Receive Date: 20140324
  Receipt Date: 20140421
  Transmission Date: 20141212
  Serious: Yes (Hospitalization, Other)
  Sender: FDA-Public Use
  Company Number: US-009507513-2011SP057770

PATIENT
  Sex: Male

DRUGS (1)
  1. AFRIN SPRAY [Suspect]
     Indication: NASAL OBSTRUCTION
     Dosage: UNK UNK, UNKNOWN
     Route: 045

REACTIONS (15)
  - Unevaluable event [Not Recovered/Not Resolved]
  - Surgery [Unknown]
  - Nasal septal operation [Unknown]
  - Turbinectomy [Unknown]
  - Sensory loss [Not Recovered/Not Resolved]
  - Anosmia [Not Recovered/Not Resolved]
  - Incorrect drug administration duration [Unknown]
  - Dependence [Not Recovered/Not Resolved]
  - Pain [Not Recovered/Not Resolved]
  - Condition aggravated [Not Recovered/Not Resolved]
  - Deformity [Not Recovered/Not Resolved]
  - Anxiety [Not Recovered/Not Resolved]
  - Nasal septum deviation [Unknown]
  - Nasal mucosal disorder [Unknown]
  - Off label use [Unknown]
